FAERS Safety Report 9988249 (Version 1)
Quarter: 2014Q1

REPORT INFORMATION
  Report Type: Report from Study
  Country: DE (occurrence: DE)
  Receive Date: 20140309
  Receipt Date: 20140309
  Transmission Date: 20141002
  Serious: Yes (Other)
  Sender: FDA-Public Use
  Company Number: DE-ROCHE-1357296

PATIENT
  Sex: 0

DRUGS (2)
  1. CAPECITABINE [Suspect]
     Indication: GASTRIC CANCER
     Dosage: REPEATED EVERY 3 WEEKS, DAY 1-14
     Route: 048
  2. MITOMYCIN C [Suspect]
     Indication: GASTRIC CANCER
     Dosage: DAY 1
     Route: 040

REACTIONS (20)
  - Thrombocytopenia [Unknown]
  - Anaemia [Unknown]
  - Leukopenia [Unknown]
  - Decreased appetite [Unknown]
  - Diarrhoea [Unknown]
  - Dysphagia [Unknown]
  - Vomiting [Unknown]
  - Nausea [Unknown]
  - Blood alkaline phosphatase increased [Unknown]
  - Dyspnoea [Unknown]
  - Ascites [Unknown]
  - Fatigue [Unknown]
  - Palmar-plantar erythrodysaesthesia syndrome [Unknown]
  - Pain [Unknown]
  - Neuropathy peripheral [Unknown]
  - Convulsion [Unknown]
  - Syncope [Unknown]
  - Thrombosis [Unknown]
  - Ulcer [Unknown]
  - General physical health deterioration [Unknown]
